FAERS Safety Report 11315951 (Version 1)
Quarter: 2015Q3

REPORT INFORMATION
  Report Type: Spontaneous
  Country: US (occurrence: None)
  Receive Date: 20150727
  Receipt Date: 20150727
  Transmission Date: 20151125
  Serious: No
  Sender: FDA-Public Use
  Company Number: None

PATIENT
  Age: 59 Year
  Sex: Female

DRUGS (1)
  1. RISPERDAL CONSTA [Suspect]
     Active Substance: RISPERIDONE
     Indication: SCHIZOPHRENIA
     Dosage: 50 MG Q12WKS IM
     Route: 030
     Dates: start: 20140904, end: 20150724

REACTIONS (2)
  - Abnormal involuntary movement scale [None]
  - Laboratory test abnormal [None]

NARRATIVE: CASE EVENT DATE: 20150724
